FAERS Safety Report 7418625-8 (Version None)
Quarter: 2011Q2

REPORT INFORMATION
  Report Type: 
  Country: None (occurrence: None)
  Receive Date: 20110415
  Receipt Date: 20101110
  Transmission Date: 20111010
  Serious: Yes (Hospitalization)
  Sender: FDA-Public Use
  Company Number: US-BAYER-200928579NA

PATIENT
  Age: 20 Year
  Sex: Female
  Weight: 70 kg

DRUGS (11)
  1. YASMIN [Suspect]
     Indication: PREMENSTRUAL SYNDROME
  2. OXYCET [Concomitant]
  3. ZOLOFT [Concomitant]
  4. YASMIN [Suspect]
     Indication: CONTRACEPTION
     Route: 048
     Dates: start: 20030826, end: 20090315
  5. YAZ [Suspect]
     Indication: CONTRACEPTION
  6. ANTIBIOTICS [Concomitant]
     Route: 042
  7. LORATADINE [Concomitant]
     Dosage: 10 MG, UNK
     Route: 048
  8. LOPERAMIDE [Concomitant]
     Dosage: 2 MG, UNK
     Route: 048
  9. OCELLA [Suspect]
     Dosage: UNK
     Dates: start: 20080717, end: 20090424
  10. ANTIBIOTICS [Concomitant]
     Route: 042
  11. PERCOCET [Concomitant]

REACTIONS (3)
  - CHOLELITHIASIS [None]
  - ABDOMINAL PAIN UPPER [None]
  - CHOLECYSTITIS [None]
